FAERS Safety Report 16834472 (Version 3)
Quarter: 2020Q1

REPORT INFORMATION
  Report Type: Report from Study
  Country: US (occurrence: US)
  Receive Date: 20190920
  Receipt Date: 20200310
  Transmission Date: 20200409
  Serious: Yes (Hospitalization)
  Sender: FDA-Public Use
  Company Number: US-ACTELION-A-NJ2019-195754

PATIENT
  Sex: Female
  Weight: 57.6 kg

DRUGS (2)
  1. UPTRAVI [Suspect]
     Active Substance: SELEXIPAG
     Indication: PULMONARY HYPERTENSION
     Dosage: 1400 MCG, BID
     Route: 048
  2. OPSUMIT [Suspect]
     Active Substance: MACITENTAN
     Indication: PULMONARY HYPERTENSION
     Dosage: 10 MG, QD
     Route: 048
     Dates: start: 20190125

REACTIONS (6)
  - Hip arthroplasty [Unknown]
  - Fall [Unknown]
  - Knee operation [Recovering/Resolving]
  - Osteoporosis [Unknown]
  - Pelvic fracture [Unknown]
  - Hip fracture [Unknown]
